FAERS Safety Report 8922786 (Version 1)
Quarter: 2012Q4

REPORT INFORMATION
  Report Type: 
  Country: GB (occurrence: GB)
  Receive Date: 20121123
  Receipt Date: 20121123
  Transmission Date: 20130627
  Serious: Yes (Disabling, Other)
  Sender: FDA-Public Use
  Company Number: GB-ROCHE-1159312

PATIENT
  Age: 50 Year
  Sex: Female
  Weight: 64.86 kg

DRUGS (3)
  1. NAPROXEN [Suspect]
     Indication: MUSCLE STRAIN
     Route: 048
     Dates: start: 20121015, end: 20121108
  2. GABAPENTIN [Concomitant]
  3. PARACETAMOL [Concomitant]

REACTIONS (6)
  - Abdominal pain [Recovering/Resolving]
  - Dizziness [Not Recovered/Not Resolved]
  - Tension headache [Not Recovered/Not Resolved]
  - Muscle spasms [Not Recovered/Not Resolved]
  - Nausea [Recovering/Resolving]
  - Swelling face [Recovering/Resolving]
